FAERS Safety Report 11278349 (Version 4)
Quarter: 2017Q2

REPORT INFORMATION
  Report Type: Report from Study
  Country: MX (occurrence: MX)
  Receive Date: 20150717
  Receipt Date: 20170501
  Transmission Date: 20170829
  Serious: Yes (Hospitalization, Other)
  Sender: FDA-Public Use
  Company Number: PHHY2015MX081880

PATIENT
  Age: 73 Year
  Sex: Female
  Weight: 57 kg

DRUGS (7)
  1. EXFORGE [Suspect]
     Active Substance: AMLODIPINE BESYLATE\VALSARTAN
     Indication: HYPERTENSION
     Dosage: 1 DF (AMLODIPINE 5 MG, VALSARTAN 160 MG), QD
     Route: 048
  2. EXFORGE [Suspect]
     Active Substance: AMLODIPINE BESYLATE\VALSARTAN
     Dosage: 2 DF (AMLODIPINE 5 MG, VALSARTAN 160 MG), QD
     Route: 065
     Dates: end: 20170322
  3. DRAMAMINE [Concomitant]
     Active Substance: DIMENHYDRINATE
     Indication: PRODUCT USED FOR UNKNOWN INDICATION
     Dosage: UNK
     Route: 065
  4. PARACETAMOL [Concomitant]
     Active Substance: ACETAMINOPHEN
     Indication: ASTHMA
     Dosage: UNK
     Route: 065
  5. SPIRONOLACTONE. [Concomitant]
     Active Substance: SPIRONOLACTONE
     Indication: PRODUCT USED FOR UNKNOWN INDICATION
     Dosage: UNK
     Route: 065
  6. BECLOMETHASONE [Concomitant]
     Active Substance: BECLOMETHASONE
     Indication: ASTHMA
     Dosage: 2 DF, QD (AT NIGHT)
     Route: 055
  7. CO-DIOVAN [Suspect]
     Active Substance: HYDROCHLOROTHIAZIDE\VALSARTAN
     Indication: PRODUCT USED FOR UNKNOWN INDICATION
     Dosage: UNK
     Route: 065

REACTIONS (12)
  - Liver abscess [Recovered/Resolved with Sequelae]
  - Post procedural complication [Unknown]
  - Procedural hypotension [Unknown]
  - Purulent discharge [Unknown]
  - Hernia [Unknown]
  - Cough [Unknown]
  - Gallbladder injury [Recovered/Resolved with Sequelae]
  - Skin disorder [Unknown]
  - Wound complication [Recovering/Resolving]
  - Renal cyst [Unknown]
  - Gallbladder pain [Recovered/Resolved with Sequelae]
  - Hepatic infection [Unknown]

NARRATIVE: CASE EVENT DATE: 20150420
